FAERS Safety Report 15659304 (Version 3)
Quarter: 2019Q2

REPORT INFORMATION
  Report Type: Spontaneous
  Country: US (occurrence: US)
  Receive Date: 20181127
  Receipt Date: 20190404
  Transmission Date: 20190711
  Serious: Yes (Hospitalization, Other)
  Sender: FDA-Public Use
  Company Number: US-TEVA-2018-US-979399

PATIENT
  Sex: Female
  Weight: 73 kg

DRUGS (5)
  1. CABERGOLINE. [Interacting]
     Active Substance: CABERGOLINE
  2. SYNTHROID [Concomitant]
     Active Substance: LEVOTHYROXINE SODIUM
  3. RELPAX [Concomitant]
     Active Substance: ELETRIPTAN HYDROBROMIDE
  4. BELVIQ [Interacting]
     Active Substance: LORCASERIN HYDROCHLORIDE
  5. AJOVY [Suspect]
     Active Substance: FREMANEZUMAB-VFRM
     Indication: MIGRAINE
     Route: 058
     Dates: start: 20181003

REACTIONS (25)
  - Gastrointestinal disorder [Unknown]
  - Haemorrhage [Not Recovered/Not Resolved]
  - Paraesthesia [Unknown]
  - Hypothalamo-pituitary disorder [Unknown]
  - Flushing [Unknown]
  - Constipation [Unknown]
  - Thyrotoxic crisis [Unknown]
  - Thrombocytopenia [Unknown]
  - Product physical issue [Unknown]
  - Surgery [Unknown]
  - Impaired work ability [Unknown]
  - Functional gastrointestinal disorder [Unknown]
  - Gastrointestinal inflammation [Unknown]
  - Abdominal adhesions [Unknown]
  - Product residue present [Unknown]
  - Uterine haemorrhage [Not Recovered/Not Resolved]
  - Hyperacusis [Unknown]
  - Nausea [Unknown]
  - Impaired quality of life [Unknown]
  - Migraine [Not Recovered/Not Resolved]
  - Thyroid disorder [Unknown]
  - Therapeutic product effect incomplete [Unknown]
  - Photophobia [Unknown]
  - Blood pressure increased [Unknown]
  - Product use complaint [Unknown]

NARRATIVE: CASE EVENT DATE: 2018
